FAERS Safety Report 8555583-7 (Version None)
Quarter: 2012Q3

REPORT INFORMATION
  Report Type: 
  Country: None (occurrence: None)
  Receive Date: 20120731
  Receipt Date: 20110720
  Transmission Date: 20120928
  Serious: No
  Sender: FDA-Public Use
  Company Number: US-ASTRAZENECA-2008UW22371

PATIENT
  Age: 18042 Day
  Sex: Female
  Weight: 57.2 kg

DRUGS (16)
  1. ALPRAZOLAM [Concomitant]
     Dosage: 1 MG, TID PRN
     Dates: start: 19990803
  2. CELEXA [Concomitant]
     Dates: start: 19990129
  3. HYDROCODONE BITARTRATE AND ACETAMINOPHEN [Concomitant]
     Dates: start: 20061130
  4. LEXAPRO [Concomitant]
     Dates: start: 20061115
  5. SEROQUEL [Suspect]
     Indication: BIPOLAR DISORDER
     Dosage: 25 MG TO 100 MG
     Route: 048
     Dates: start: 19991022
  6. SEROQUEL [Suspect]
     Dosage: 50-400 MG
     Route: 048
     Dates: start: 20041006
  7. ALPRAZOLAM [Concomitant]
     Dates: start: 20061115
  8. RISPERDAL [Concomitant]
     Dates: start: 20070101
  9. REMERON [Concomitant]
     Dosage: 15 MG, 1/2 QHS
     Dates: start: 19981211
  10. SEROQUEL [Suspect]
     Route: 048
     Dates: start: 20061115
  11. LEXAPRO [Concomitant]
     Dates: start: 20060101
  12. PREDNISONE [Concomitant]
     Dates: start: 20061201
  13. PROMETHAZINE [Concomitant]
     Dates: start: 20061219
  14. SEROQUEL [Suspect]
     Dosage: 200-300 MG
     Route: 048
     Dates: start: 20060518
  15. ALPRAZOLAM [Concomitant]
     Dosage: 1 MG TO 2 MG
     Dates: start: 20040107
  16. HYDROCODONE [Concomitant]
     Dates: start: 20040923

REACTIONS (4)
  - BLOOD CHOLESTEROL INCREASED [None]
  - GASTROINTESTINAL DISORDER [None]
  - DIABETES MELLITUS [None]
  - PAIN IN EXTREMITY [None]
